FAERS Safety Report 7051586-2 (Version None)
Quarter: 2010Q4

REPORT INFORMATION
  Report Type: 
  Country: None (occurrence: None)
  Receive Date: 20101018
  Receipt Date: 20101018
  Transmission Date: 20110411
  Serious: No
  Sender: FDA-Public Use
  Company Number: None

PATIENT
  Sex: Female
  Weight: 83.9154 kg

DRUGS (1)
  1. MICONAZOLE [Suspect]
     Indication: CANDIDIASIS
     Dosage: 200 MG/ 4% 1/DAY VAGINAL
     Route: 067
     Dates: start: 20100928

REACTIONS (3)
  - BURNING SENSATION [None]
  - INSOMNIA [None]
  - PRODUCT QUALITY ISSUE [None]
